FAERS Safety Report 22156908 (Version 1)
Quarter: 2023Q1

REPORT INFORMATION
  Report Type: Spontaneous
  Country: US (occurrence: US)
  Receive Date: 20230330
  Receipt Date: 20230330
  Transmission Date: 20230418
  Serious: Yes (Other)
  Sender: FDA-Public Use
  Company Number: US-PFIZER INC-202300135835

PATIENT
  Age: 59 Year
  Sex: Male

DRUGS (1)
  1. RUXIENCE [Suspect]
     Active Substance: RITUXIMAB-PVVR
     Indication: Chronic inflammatory demyelinating polyradiculoneuropathy
     Dosage: 1 G (1GM IV INFUSION EVERY 2 WEEKS)
     Route: 042
     Dates: start: 20230327, end: 20230327

REACTIONS (6)
  - Oropharyngeal pain [Recovering/Resolving]
  - Dysphonia [Recovering/Resolving]
  - Oedema [Recovering/Resolving]
  - Speech disorder [Recovering/Resolving]
  - Stridor [Recovering/Resolving]
  - Off label use [Unknown]

NARRATIVE: CASE EVENT DATE: 20230327
